FAERS Safety Report 24572833 (Version 1)
Quarter: 2024Q4

REPORT INFORMATION
  Report Type: Spontaneous
  Country: US (occurrence: None)
  Receive Date: 20241101
  Receipt Date: 20241101
  Transmission Date: 20250114
  Serious: Yes (Life-Threatening)
  Sender: Public
  Company Number: None

PATIENT
  Age: 69 Year
  Sex: Female
  Weight: 55.6 kg

DRUGS (1)
  1. PENTAM 300 [Suspect]
     Active Substance: PENTAMIDINE ISETHIONATE
     Indication: Stem cell transplant
     Dosage: OTHER FREQUENCY : EVERY 3 WEEKS;?
     Route: 041
     Dates: start: 20231212, end: 20241030

REACTIONS (5)
  - Infusion related reaction [None]
  - Unresponsive to stimuli [None]
  - Agonal respiration [None]
  - Pulse abnormal [None]
  - Blood pressure increased [None]

NARRATIVE: CASE EVENT DATE: 20241030
